FAERS Safety Report 12136526 (Version 3)
Quarter: 2016Q1

REPORT INFORMATION
  Report Type: Report from Study
  Country: HR (occurrence: HR)
  Receive Date: 20160302
  Receipt Date: 20160325
  Transmission Date: 20160526
  Serious: Yes (Death, Hospitalization, Other)
  Sender: FDA-Public Use
  Company Number: PHHO2015HR017337

PATIENT
  Age: 55 Year
  Sex: Male
  Weight: 90 kg

DRUGS (7)
  1. DEXAMETHASONE. [Concomitant]
     Active Substance: DEXAMETHASONE
     Indication: VOMITING
     Dosage: 8 MG, QD
     Route: 042
     Dates: start: 20150904
  2. DACARBAZINE. [Concomitant]
     Active Substance: DACARBAZINE
     Indication: MALIGNANT MELANOMA
     Dosage: 1600 MG, QD
     Route: 042
     Dates: start: 20150908, end: 20150908
  3. DABRAFENIB [Suspect]
     Active Substance: DABRAFENIB
     Indication: METASTATIC MALIGNANT MELANOMA
     Dosage: 150 MG, BID (2 DF BID)
     Route: 048
     Dates: start: 20150406, end: 20150902
  4. RANITIDINE [Concomitant]
     Active Substance: RANITIDINE\RANITIDINE HYDROCHLORIDE
     Indication: NAUSEA
     Dosage: 50 MG, QD
     Route: 042
     Dates: start: 20150904
  5. METOCLOPRAMIDE. [Concomitant]
     Active Substance: METOCLOPRAMIDE
     Indication: NAUSEA
     Dosage: 10 MG, QD
     Route: 065
     Dates: start: 20150904
  6. ZELBORAF [Concomitant]
     Active Substance: VEMURAFENIB
     Indication: MALIGNANT MELANOMA
     Dosage: UNK
     Route: 048
     Dates: start: 201502, end: 201504
  7. TRAMETINIB [Suspect]
     Active Substance: TRAMETINIB
     Indication: METASTATIC MALIGNANT MELANOMA
     Dosage: 2 MG, UNK
     Route: 048
     Dates: start: 20150406, end: 20150902

REACTIONS (11)
  - Malignant neoplasm progression [Fatal]
  - General physical health deterioration [Unknown]
  - Metastases to peritoneum [Unknown]
  - Decreased appetite [Unknown]
  - Drug ineffective [Unknown]
  - Ascites [Unknown]
  - Metastases to bone [Unknown]
  - Feeding disorder [Unknown]
  - Nausea [Unknown]
  - Urine output decreased [Unknown]
  - Hyperhidrosis [Unknown]

NARRATIVE: CASE EVENT DATE: 20150526
